FAERS Safety Report 6977857-3 (Version None)
Quarter: 2010Q3

REPORT INFORMATION
  Report Type: 
  Country: None (occurrence: None)
  Receive Date: 20100913
  Receipt Date: 20100903
  Transmission Date: 20110219
  Serious: No
  Sender: FDA-Public Use
  Company Number: 2009BI022623

PATIENT
  Age: 33 Year
  Sex: Female

DRUGS (1)
  1. TYSABRI [Suspect]
     Indication: MULTIPLE SCLEROSIS
     Route: 042
     Dates: start: 20090710, end: 20100302

REACTIONS (7)
  - CONFUSIONAL STATE [None]
  - DIARRHOEA [None]
  - FATIGUE [None]
  - FLUID RETENTION [None]
  - PENICILLIOSIS [None]
  - SCAR [None]
  - URINARY TRACT INFECTION [None]
